FAERS Safety Report 5220965-8 (Version None)
Quarter: 2007Q1

REPORT INFORMATION
  Report Type: 
  Country: None (occurrence: None)
  Receive Date: 20070126
  Receipt Date: 20070115
  Transmission Date: 20070707
  Serious: Yes (Congenital Anomaly, Other)
  Sender: FDA-Public Use
  Company Number: 2007AC00112

PATIENT

DRUGS (3)
  1. BUDESONIDE [Suspect]
     Dosage: MOTHER TREATED IN EARLY PREGNANCY
     Route: 064
  2. AZATHIOPRINE [Suspect]
     Dosage: MOTHER TREATED IN EARLY PREGNANCY
     Route: 064
  3. FOLIC ACID [Suspect]
     Dosage: MOTHER TREATED IN EARLY PREGNANCY
     Route: 064

REACTIONS (1)
  - ENCEPHALOCELE [None]
